FAERS Safety Report 15331436 (Version 2)
Quarter: 2018Q3

REPORT INFORMATION
  Report Type: Report from Study
  Country: US (occurrence: US)
  Receive Date: 20180829
  Receipt Date: 20180914
  Transmission Date: 20181010
  Serious: Yes (Other)
  Sender: FDA-Public Use
  Company Number: US-TEVA-2018-US-948467

PATIENT
  Age: 50 Year
  Sex: Male

DRUGS (6)
  1. PREDNISONE. [Suspect]
     Active Substance: PREDNISONE
     Indication: ACUTE ZONAL OCCULT OUTER RETINOPATHY
     Route: 048
  2. DOXYCYCLINE. [Concomitant]
     Active Substance: DOXYCYCLINE
     Route: 065
  3. TRIESENCE [Suspect]
     Active Substance: TRIAMCINOLONE ACETONIDE
     Indication: ACUTE ZONAL OCCULT OUTER RETINOPATHY
     Dosage: IN LEFT EYE
     Route: 050
  4. VALACYCLOVIR [Concomitant]
     Active Substance: VALACYCLOVIR HYDROCHLORIDE
     Route: 065
  5. MYCOPHENOLATE MOFETIL. [Concomitant]
     Active Substance: MYCOPHENOLATE MOFETIL
     Route: 065
  6. RETISERT [Suspect]
     Active Substance: FLUOCINOLONE ACETONIDE
     Indication: ACUTE ZONAL OCCULT OUTER RETINOPATHY
     Dosage: IN LEFT EYE
     Route: 050

REACTIONS (2)
  - Ocular hypertension [Recovering/Resolving]
  - Cataract [Recovering/Resolving]
